FAERS Safety Report 13744555 (Version 1)
Quarter: 2017Q3

REPORT INFORMATION
  Report Type: Report from Study
  Country: US (occurrence: US)
  Receive Date: 20170712
  Receipt Date: 20170712
  Transmission Date: 20171127
  Serious: No
  Sender: FDA-Public Use
  Company Number: PHEH2017US021074

PATIENT
  Sex: Male

DRUGS (1)
  1. COSENTYX [Suspect]
     Active Substance: SECUKINUMAB
     Indication: PSORIASIS
     Dosage: 300 MG, QMO (EVERY 04 WEEKS)
     Route: 065
     Dates: start: 201702

REACTIONS (4)
  - Peripheral swelling [Unknown]
  - Movement disorder [Unknown]
  - Burning sensation [Unknown]
  - Arthralgia [Unknown]
